FAERS Safety Report 7016090-6 (Version None)
Quarter: 2010Q3

REPORT INFORMATION
  Report Type: 
  Country: None (occurrence: None)
  Receive Date: 20100927
  Receipt Date: 20100907
  Transmission Date: 20110219
  Serious: Yes (Other)
  Sender: FDA-Public Use
  Company Number: GB-BAYER-201039007GPV

PATIENT
  Sex: Female

DRUGS (2)
  1. ADALAT [Suspect]
     Indication: HYPERTENSION
  2. VARIOUS TYPES OF ANTIHYPERTENSIVE MEDICATION (NOS) [Concomitant]
     Indication: HYPERTENSION

REACTIONS (2)
  - DRUG EXPOSURE VIA BREAST MILK [None]
  - MALAISE [None]
